FAERS Safety Report 6385470-4 (Version None)
Quarter: 2009Q4

REPORT INFORMATION
  Report Type: 
  Country: None (occurrence: None)
  Receive Date: 20091002
  Receipt Date: 20080910
  Transmission Date: 20100525
  Serious: No
  Sender: FDA-Public Use
  Company Number: US-ASTRAZENECA-2008UW18874

PATIENT
  Age: 71 Year
  Sex: Female
  Weight: 72.6 kg

DRUGS (6)
  1. ARIMIDEX [Suspect]
     Indication: BREAST CANCER
     Route: 048
     Dates: start: 20040101
  2. ALTACE [Concomitant]
  3. SIMVASTATIN [Concomitant]
  4. CLONIDINE [Concomitant]
  5. GABAPENTIN [Concomitant]
     Indication: HOT FLUSH
  6. OSTEO BIFLEX [Concomitant]

REACTIONS (3)
  - ARTHRITIS [None]
  - MOOD SWINGS [None]
  - WEIGHT INCREASED [None]
